FAERS Safety Report 9662879 (Version 2)
Quarter: 2013Q4

REPORT INFORMATION
  Report Type: Spontaneous
  Country: US (occurrence: US)
  Receive Date: 20131031
  Receipt Date: 20131031
  Transmission Date: 20140711
  Serious: Yes (Other)
  Sender: FDA-Public Use
  Company Number: US-NAPPMUNDI-USA-2011-0072643

PATIENT
  Age: 63 Year
  Sex: Female
  Weight: 77.1 kg

DRUGS (4)
  1. OXYCONTIN (NDA 22-272) [Suspect]
     Indication: PAIN
     Dosage: 80 MG, TID
     Route: 048
     Dates: end: 20110726
  2. OXYCONTIN (NDA 22-272) [Suspect]
     Indication: SPINAL COLUMN STENOSIS
  3. OXYCONTIN (NDA 22-272) [Suspect]
     Indication: OSTEOARTHRITIS
  4. ZOLPIDEM [Concomitant]
     Indication: PRODUCT USED FOR UNKNOWN INDICATION

REACTIONS (10)
  - Drug dependence [Unknown]
  - Myalgia [Unknown]
  - Abdominal distension [Unknown]
  - Product contamination [Unknown]
  - Abdominal pain [Recovered/Resolved]
  - Diarrhoea [Unknown]
  - Nausea [Unknown]
  - Flatulence [Unknown]
  - Dyspepsia [Unknown]
  - Vomiting [Unknown]
